FAERS Safety Report 6832445-4 (Version None)
Quarter: 2010Q3

REPORT INFORMATION
  Report Type: 
  Country: None (occurrence: None)
  Receive Date: 20100712
  Receipt Date: 20070312
  Transmission Date: 20110219
  Serious: No
  Sender: FDA-Public Use
  Company Number: US-PFIZER INC-2007020583

PATIENT
  Age: 45 Year
  Sex: Female
  Weight: 58.97 kg

DRUGS (5)
  1. CHANTIX [Suspect]
     Indication: SMOKING CESSATION THERAPY
     Dates: start: 20070201
  2. CYMBALTA [Concomitant]
     Indication: DEPRESSION
  3. HYZAAR [Concomitant]
     Indication: HYPERTENSION
  4. KEFLEX [Concomitant]
     Indication: INFECTION
     Dates: end: 20070301
  5. HYDROCODONE BITARTRATE [Concomitant]

REACTIONS (3)
  - ENURESIS [None]
  - POLYURIA [None]
  - RENAL PAIN [None]
